FAERS Safety Report 22096133 (Version 1)
Quarter: 2023Q1

REPORT INFORMATION
  Report Type: Spontaneous
  Country: GB (occurrence: GB)
  Receive Date: 20230315
  Receipt Date: 20230315
  Transmission Date: 20230418
  Serious: No
  Sender: FDA-Public Use
  Company Number: None

PATIENT
  Age: 54 Year
  Sex: Female
  Weight: 88 kg

DRUGS (9)
  1. TOLVAPTAN [Suspect]
     Active Substance: TOLVAPTAN
     Indication: Congenital cystic kidney disease
     Dosage: 15 MILLIGRAM, UNK (TABLET)
     Route: 048
     Dates: start: 20171205
  2. TOLVAPTAN [Suspect]
     Active Substance: TOLVAPTAN
     Dosage: 45 MILLIGRAM UNK (TABLET)
     Route: 048
     Dates: start: 20171205
  3. TOLVAPTAN [Suspect]
     Active Substance: TOLVAPTAN
     Dosage: 30 MILLIGRAM UNK (TABLET)
     Route: 048
     Dates: start: 20180109
  4. TOLVAPTAN [Suspect]
     Active Substance: TOLVAPTAN
     Dosage: 60 MILLIGRAM UNK (TABLET)
     Route: 048
     Dates: start: 20180109
  5. TOLVAPTAN [Suspect]
     Active Substance: TOLVAPTAN
     Dosage: 30 MILLIGRAM UNK (TABLET)
     Route: 048
     Dates: start: 20180130
  6. TOLVAPTAN [Suspect]
     Active Substance: TOLVAPTAN
     Dosage: 90 MILLIGRAM UNK (TABLET)
     Route: 048
     Dates: start: 20180130
  7. LACIDIPINE [Concomitant]
     Active Substance: LACIDIPINE
     Indication: Product used for unknown indication
     Dosage: 4 MILLIGRAM, QD (CUMULATIVE DOSE: 4888.1665 MG)
     Route: 048
     Dates: start: 20140828
  8. ROSUVASTATIN [Concomitant]
     Active Substance: ROSUVASTATIN
     Indication: Hyperlipidaemia
     Dosage: 15 MILLIGRAM, QD (CUMULATIVE DOSE: 26205.0 MG)
     Route: 048
     Dates: start: 20130321
  9. TRANDOLAPRIL [Concomitant]
     Active Substance: TRANDOLAPRIL
     Indication: Product used for unknown indication
     Dosage: 4 MILLIGRAM, QD (CUMULATIVE DOSE: 316.0 MG )
     Route: 048
     Dates: start: 20180321

REACTIONS (1)
  - Nocturia [Not Recovered/Not Resolved]

NARRATIVE: CASE EVENT DATE: 20180101
